FAERS Safety Report 24540944 (Version 1)
Quarter: 2024Q4

REPORT INFORMATION
  Report Type: Report from Study
  Country: ES (occurrence: ES)
  Receive Date: 20241023
  Receipt Date: 20241023
  Transmission Date: 20250114
  Serious: Yes (Hospitalization, Other)
  Sender: RADIUS PHARM
  Company Number: ES-RADIUS HEALTH INC.-2024ES008130

PATIENT
  Age: 75 Year
  Sex: Female

DRUGS (2)
  1. ABALOPARATIDE [Suspect]
     Active Substance: ABALOPARATIDE
     Indication: Osteoporosis
     Dosage: 1 DOSAGE FORM EVERY 1 DAY(S) 1INYEC/24H
     Route: 058
     Dates: start: 202408, end: 20240809
  2. ABALOPARATIDE [Suspect]
     Active Substance: ABALOPARATIDE
     Dosage: 1 DOSAGE FORM EVERY 1 DAY(S) 1INYEC/24H
     Route: 058
     Dates: start: 202409

REACTIONS (2)
  - Therapy interrupted [Unknown]
  - Pulmonary embolism [Unknown]

NARRATIVE: CASE EVENT DATE: 20240809
